FAERS Safety Report 9378869 (Version 2)
Quarter: 2013Q3

REPORT INFORMATION
  Report Type: Spontaneous
  Country: US (occurrence: US)
  Receive Date: 20130702
  Receipt Date: 20130722
  Transmission Date: 20140515
  Serious: No
  Sender: FDA-Public Use
  Company Number: US-PFIZER INC-2013192070

PATIENT
  Age: 74 Year
  Sex: Female
  Weight: 58.96 kg

DRUGS (5)
  1. PREMARIN [Suspect]
     Dosage: 0.5 G, 2X/WEEK
     Route: 067
     Dates: start: 20130610, end: 20130619
  2. COMBIGAN [Suspect]
     Indication: GLAUCOMA
     Dosage: UNK
  3. TRUSOPT [Suspect]
     Indication: GLAUCOMA
     Dosage: UNK
  4. OMEGA-3 [Concomitant]
     Indication: ARTHRITIS
     Dosage: UNK
  5. TYLENOL [Concomitant]
     Indication: ARTHRITIS
     Dosage: UNK, AS NEEDED

REACTIONS (1)
  - Dry eye [Unknown]
